FAERS Safety Report 6688288-8 (Version None)
Quarter: 2010Q2

REPORT INFORMATION
  Report Type: 
  Country: None (occurrence: None)
  Receive Date: 20100420
  Receipt Date: 20100408
  Transmission Date: 20101027
  Serious: Yes (Death, Hospitalization)
  Sender: FDA-Public Use
  Company Number: HU-ROCHE-696210

PATIENT
  Sex: Male
  Weight: 72 kg

DRUGS (26)
  1. BEVACIZUMAB [Suspect]
     Indication: NON-SMALL CELL LUNG CANCER
     Dosage: FREQUENCY: 1X, FORM INFUSION
     Route: 042
     Dates: start: 20091109
  2. GEMCITABINE HCL [Suspect]
     Indication: NON-SMALL CELL LUNG CANCER
     Dosage: FORM INFUSION: ON DAY 1 AND DAY 8
     Route: 042
     Dates: start: 20091109
  3. CARBOPLATIN [Suspect]
     Indication: NON-SMALL CELL LUNG CANCER
     Dosage: FORM: INFUSION
     Route: 042
     Dates: start: 20091109
  4. SERETIDE [Concomitant]
     Dosage: DRUG REPORTED AS SERETIDE 500/50
     Dates: start: 20091104, end: 20100407
  5. SPIRIVA [Concomitant]
     Dates: start: 20091104, end: 20100407
  6. MEGESIN [Concomitant]
     Dates: start: 20091109, end: 20100407
  7. CIFRAN [Concomitant]
     Indication: BRONCHOPNEUMONIA
     Dates: start: 20091020, end: 20091024
  8. MEDROL [Concomitant]
     Dates: start: 20091020, end: 20091029
  9. AUGMENTIN '125' [Concomitant]
     Indication: BRONCHOPNEUMONIA
     Dates: start: 20091020, end: 20091026
  10. AUGMENTIN '125' [Concomitant]
     Dates: start: 20100322, end: 20100323
  11. KALIUM-R [Concomitant]
     Indication: PROPHYLAXIS
     Dates: start: 20091020, end: 20091026
  12. KALIUM-R [Concomitant]
     Dates: start: 20091116, end: 20091117
  13. KALIUM-R [Concomitant]
     Dates: start: 20100202
  14. SINECOD [Concomitant]
     Indication: BRONCHOSCOPY
     Dates: start: 20091022, end: 20091022
  15. LIDOCAINE [Concomitant]
     Indication: BRONCHOSCOPY
     Dates: start: 20091022, end: 20091022
  16. ONDANSETRON [Concomitant]
     Indication: PROPHYLAXIS
     Dates: start: 20091109
  17. MEDROL [Concomitant]
     Indication: GRANULOCYTOPENIA
     Dates: start: 20091116, end: 20091117
  18. MEDROL [Concomitant]
     Dates: start: 20100202
  19. EPREX [Concomitant]
     Indication: ANAEMIA
     Dates: start: 20091127, end: 20091220
  20. NEORECORMON [Concomitant]
     Indication: ANAEMIA
     Dates: start: 20091221
  21. CONCOR [Concomitant]
     Dates: start: 20100104
  22. JURNISTA [Concomitant]
     Indication: CHEST PAIN
     Dates: start: 20100104
  23. NEUPOGEN [Concomitant]
     Indication: GRANULOCYTOPENIA
     Dates: start: 20100202, end: 20100203
  24. NEUPOGEN [Concomitant]
     Dates: start: 20100403
  25. NEULASTA [Concomitant]
     Indication: PROPHYLAXIS
     Dates: start: 20100217
  26. FORTUM [Concomitant]
     Indication: EMPYEMA
     Dates: start: 20100323, end: 20100330

REACTIONS (3)
  - EMPYEMA [None]
  - GRANULOCYTOPENIA [None]
  - PNEUMONIA [None]
